FAERS Safety Report 20412336 (Version 4)
Quarter: 2023Q2

REPORT INFORMATION
  Report Type: Spontaneous
  Country: US (occurrence: US)
  Receive Date: 20220201
  Receipt Date: 20230410
  Transmission Date: 20230722
  Serious: Yes (Death, Other)
  Sender: FDA-Public Use
  Company Number: US-BAYER-2022A015939

PATIENT
  Age: 57 Year
  Sex: Male

DRUGS (9)
  1. STIVARGA [Suspect]
     Active Substance: REGORAFENIB
     Indication: Colorectal cancer metastatic
  2. LONSURF [Suspect]
     Active Substance: TIPIRACIL HYDROCHLORIDE\TRIFLURIDINE
     Indication: Colorectal cancer metastatic
     Dosage: 80 MG, BID
     Route: 048
     Dates: start: 20210628
  3. XELODA [Concomitant]
     Active Substance: CAPECITABINE
  4. CALCIUM CARBONATE [Concomitant]
     Active Substance: CALCIUM CARBONATE
     Dosage: UNK
  5. GABAPENTIN [Concomitant]
     Active Substance: GABAPENTIN
     Dosage: UNK
  6. VITAMIN D3 [Concomitant]
     Active Substance: CHOLECALCIFEROL
     Dosage: UNK
  7. PROCHLORPERAZINE [Concomitant]
     Active Substance: PROCHLORPERAZINE
     Dosage: UNK
  8. FERROUS SULFATE [Concomitant]
     Active Substance: FERROUS SULFATE
     Dosage: UNK
  9. METOPROLOL [Concomitant]
     Active Substance: METOPROLOL
     Dosage: UNK

REACTIONS (18)
  - Colorectal cancer metastatic [Fatal]
  - Anaemia [None]
  - Ascites [None]
  - Thrombocytopenia [None]
  - Weight decreased [None]
  - Urge incontinence [None]
  - Chromaturia [None]
  - Umbilical hernia [None]
  - Leukocytosis [None]
  - Abdominal distension [None]
  - Dyspnoea [None]
  - Nausea [None]
  - Diarrhoea [None]
  - Fatigue [None]
  - Off label use [None]
  - Haemoglobin decreased [None]
  - White blood cell count decreased [None]
  - Neutrophil count decreased [None]
